FAERS Safety Report 16893846 (Version 3)
Quarter: 2020Q3

REPORT INFORMATION
  Report Type: Spontaneous
  Country: US (occurrence: US)
  Receive Date: 20191008
  Receipt Date: 20200728
  Transmission Date: 20201102
  Serious: Yes (Disabling)
  Sender: FDA-Public Use
  Company Number: US-PFIZER INC-2016552381

PATIENT
  Age: 57 Year
  Sex: Male

DRUGS (1)
  1. VIAGRA [Suspect]
     Active Substance: SILDENAFIL CITRATE
     Indication: ERECTILE DYSFUNCTION
     Dosage: 100 MG, AS NEEDED (TAKE 1 TAB DAILY PRN (AS NEEDED))

REACTIONS (5)
  - Fatigue [Unknown]
  - Limb discomfort [Unknown]
  - Back disorder [Unknown]
  - Illness [Unknown]
  - Malaise [Unknown]
